FAERS Safety Report 4281440-0 (Version None)
Quarter: 2004Q1

REPORT INFORMATION
  Report Type: 
  Country: None (occurrence: None)
  Receive Date: 20040108
  Receipt Date: 20031021
  Transmission Date: 20041129
  Serious: Yes (Life-Threatening, Other)
  Sender: FDA-Public Use
  Company Number: HQWYE390021OCT03

PATIENT
  Sex: Female

DRUGS (1)
  1. PREMPRO [Suspect]
     Dosage: DOSAGE DAILY FOR SEVERAL YEARS, ORAL
     Route: 048

REACTIONS (2)
  - ENDOMETRIAL CANCER [None]
  - THROMBOSIS [None]
